FAERS Safety Report 5342088-X (Version None)
Quarter: 2007Q2

REPORT INFORMATION
  Report Type: 
  Country: None (occurrence: None)
  Receive Date: 20070601
  Receipt Date: 20070529
  Transmission Date: 20071010
  Serious: Yes (Hospitalization, Other)
  Sender: FDA-Public Use
  Company Number: US-ASTRAZENECA-2007UW00593

PATIENT
  Age: 318 Day
  Sex: Male
  Weight: 9.5 kg

DRUGS (7)
  1. PULMICORT RESPULES [Suspect]
     Indication: WHEEZING
     Route: 055
     Dates: start: 20061101, end: 20070501
  2. PULMICORT RESPULES [Suspect]
     Indication: COUGH
     Route: 055
     Dates: start: 20061101, end: 20070501
  3. XOPENEX [Concomitant]
     Indication: ASTHMA
  4. PREVACID [Concomitant]
     Indication: GASTROOESOPHAGEAL REFLUX DISEASE
     Dates: start: 20061001
  5. DECADRON [Concomitant]
     Dates: start: 20061101
  6. ZITHROMAX [Concomitant]
  7. ORAPRED [Concomitant]

REACTIONS (5)
  - CHEST X-RAY ABNORMAL [None]
  - LIVER FUNCTION TEST ABNORMAL [None]
  - PLATELET COUNT DECREASED [None]
  - PURPURA [None]
  - THROMBOCYTOPENIA [None]
